FAERS Safety Report 22017241 (Version 1)
Quarter: 2023Q1

REPORT INFORMATION
  Report Type: Spontaneous
  Country: US (occurrence: US)
  Receive Date: 20230221
  Receipt Date: 20230221
  Transmission Date: 20230418
  Serious: Yes (Other)
  Sender: FDA-Public Use
  Company Number: US-INDIVIOR EUROPE LIMITED-INDV-138116-2023

PATIENT

DRUGS (1)
  1. SUBOXONE [Suspect]
     Active Substance: BUPRENORPHINE HYDROCHLORIDE\NALOXONE HYDROCHLORIDE
     Indication: Drug dependence
     Dosage: 8 MILLIGRAM, QD
     Route: 065

REACTIONS (4)
  - Suicidal ideation [Unknown]
  - Tooth disorder [Not Recovered/Not Resolved]
  - Drug dependence [Not Recovered/Not Resolved]
  - Drug withdrawal syndrome [Unknown]
